FAERS Safety Report 23657675 (Version 1)
Quarter: 2024Q1

REPORT INFORMATION
  Report Type: Spontaneous
  Country: US (occurrence: US)
  Receive Date: 20240321
  Receipt Date: 20240321
  Transmission Date: 20240409
  Serious: No
  Sender: FDA-Public Use
  Company Number: US-PFIZER INC-PV202400009112

PATIENT
  Age: 52 Year
  Sex: Female
  Weight: 83.46 kg

DRUGS (1)
  1. SYNAREL [Suspect]
     Active Substance: NAFARELIN ACETATE
     Indication: Endometriosis
     Dosage: 2 MG/ML, 2X/DAY (1 SPRAY IN ONE NOSTRIL IN THE MORNING, AND 1 SPRAY IN THE OTHER NOSTRIL AT NIGHT)
     Route: 045
     Dates: start: 2003, end: 20240229

REACTIONS (1)
  - Amenorrhoea [Unknown]
